FAERS Safety Report 11717916 (Version 1)
Quarter: 2015Q4

REPORT INFORMATION
  Report Type: Spontaneous
  Country: US (occurrence: None)
  Receive Date: 20151109
  Receipt Date: 20151109
  Transmission Date: 20160304
  Serious: No
  Sender: FDA-Public Use
  Company Number: None

PATIENT
  Age: 42 Year
  Sex: Male
  Weight: 136.08 kg

DRUGS (16)
  1. TOPAMAX [Concomitant]
     Active Substance: TOPIRAMATE
  2. LATUDA [Suspect]
     Active Substance: LURASIDONE HYDROCHLORIDE
     Indication: BIPOLAR I DISORDER
     Dosage: 1
     Route: 048
     Dates: start: 20150209, end: 20150515
  3. KLONOPIN [Concomitant]
     Active Substance: CLONAZEPAM
  4. VICTOZA [Concomitant]
     Active Substance: LIRAGLUTIDE
  5. AMLODIPINE BESYLATE. [Concomitant]
     Active Substance: AMLODIPINE BESYLATE
  6. LATUDA [Suspect]
     Active Substance: LURASIDONE HYDROCHLORIDE
     Indication: PSYCHOTIC DISORDER
     Dosage: 1
     Route: 048
     Dates: start: 20150209, end: 20150515
  7. SEROQUEL [Concomitant]
     Active Substance: QUETIAPINE FUMARATE
  8. LATUDA [Suspect]
     Active Substance: LURASIDONE HYDROCHLORIDE
     Indication: BIPOLAR DISORDER
     Dosage: 1
     Route: 048
     Dates: start: 20150209, end: 20150515
  9. REQUIP [Concomitant]
     Active Substance: ROPINIROLE HYDROCHLORIDE
  10. VIT B-12 [Concomitant]
  11. ULTRAM [Concomitant]
     Active Substance: TRAMADOL HYDROCHLORIDE
  12. MELOXICAM. [Concomitant]
     Active Substance: MELOXICAM
  13. NEURONTIN [Concomitant]
     Active Substance: GABAPENTIN
  14. FISH OIL [Concomitant]
     Active Substance: FISH OIL
  15. METFORMIN [Concomitant]
     Active Substance: METFORMIN HYDROCHLORIDE
  16. AMBIEN [Concomitant]
     Active Substance: ZOLPIDEM TARTRATE

REACTIONS (3)
  - Musculoskeletal stiffness [None]
  - Hemiplegia [None]
  - Pain in extremity [None]

NARRATIVE: CASE EVENT DATE: 20150515
